FAERS Safety Report 5728213-7 (Version None)
Quarter: 2008Q2

REPORT INFORMATION
  Report Type: 
  Country: None (occurrence: None)
  Receive Date: 20080506
  Receipt Date: 20080422
  Transmission Date: 20081010
  Serious: Yes (Other)
  Sender: FDA-Public Use
  Company Number: US-BAYER-200816677NA

PATIENT
  Age: 24 Year
  Sex: Female
  Weight: 84 kg

DRUGS (1)
  1. MIRENA [Suspect]
     Indication: CONTRACEPTION
     Route: 015
     Dates: start: 20070511

REACTIONS (9)
  - ABDOMINAL DISTENSION [None]
  - ABDOMINAL PAIN [None]
  - AMENORRHOEA [None]
  - CONVULSION [None]
  - IUCD COMPLICATION [None]
  - MALAISE [None]
  - SOMNOLENCE [None]
  - VAGINAL HAEMORRHAGE [None]
  - WEIGHT DECREASED [None]
